FAERS Safety Report 10673821 (Version 1)
Quarter: 2014Q4

REPORT INFORMATION
  Report Type: Spontaneous
  Country: CN (occurrence: None)
  Receive Date: 20141222
  Receipt Date: 20141222
  Transmission Date: 20150529
  Serious: Yes (Other)
  Sender: FDA-Public Use
  Company Number: FK201406306

PATIENT
  Age: 53 Year
  Sex: Female

DRUGS (3)
  1. INDOMETHACIN (MANUFACTURER UNKNOWN) (INDOMETHACIN FOR INJECTION) [Suspect]
     Active Substance: INDOMETHACIN
     Dosage: 75, X2 PILLS/DAY, UNKNOWN
  2. CEFALCOR (CEFACLOR) [Concomitant]
  3. LOTENSIN [Concomitant]
     Active Substance: BENAZEPRIL HYDROCHLORIDE

REACTIONS (3)
  - Hepatitis acute [None]
  - IgA nephropathy [None]
  - Renal tubular disorder [None]
